FAERS Safety Report 4839936-6 (Version None)
Quarter: 2005Q4

REPORT INFORMATION
  Report Type: 
  Country: None (occurrence: None)
  Receive Date: 20051125
  Receipt Date: 20051111
  Transmission Date: 20060501
  Serious: Yes (Other)
  Sender: FDA-Public Use
  Company Number: 8013394

PATIENT

DRUGS (2)
  1. KEPPRA [Suspect]
  2. TEGRETOL [Concomitant]

REACTIONS (1)
  - THROMBOCYTOPENIA [None]
